FAERS Safety Report 26099953 (Version 1)
Quarter: 2025Q4

REPORT INFORMATION
  Report Type: Spontaneous
  Country: US (occurrence: US)
  Receive Date: 20251128
  Receipt Date: 20251128
  Transmission Date: 20260118
  Serious: No
  Sender: LEO PHARM
  Company Number: US-LEO Pharma-384512

PATIENT
  Age: 36 Year
  Sex: Female

DRUGS (4)
  1. ADBRY [Suspect]
     Active Substance: TRALOKINUMAB-LDRM
     Indication: Dermatitis atopic
     Dosage: 600 MG FOR THE DOSE GIVEN ON 07-NOV-2025
     Route: 058
  2. ADBRY [Suspect]
     Active Substance: TRALOKINUMAB-LDRM
     Indication: Dermatitis atopic
     Dosage: 600 MG FOR THE DOSE GIVEN ON 07-NOV-2025
     Route: 058
     Dates: start: 20251107, end: 20251107
  3. ADBRY [Suspect]
     Active Substance: TRALOKINUMAB-LDRM
     Indication: Urticaria
     Dosage: 600 MG FOR THE DOSE GIVEN ON 07-NOV-2025
     Route: 058
  4. ADBRY [Suspect]
     Active Substance: TRALOKINUMAB-LDRM
     Indication: Urticaria
     Dosage: 600 MG FOR THE DOSE GIVEN ON 07-NOV-2025
     Route: 058
     Dates: start: 20251107, end: 20251107

REACTIONS (1)
  - Injection site pain [Recovered/Resolved]
